FAERS Safety Report 6685230-0 (Version None)
Quarter: 2010Q2

REPORT INFORMATION
  Report Type: 
  Country: None (occurrence: None)
  Receive Date: 20100416
  Receipt Date: 20100407
  Transmission Date: 20101027
  Serious: Yes (Hospitalization)
  Sender: FDA-Public Use
  Company Number: US-AMGEN-QUU404263

PATIENT
  Sex: Female

DRUGS (2)
  1. ENBREL [Suspect]
     Indication: PSORIATIC ARTHROPATHY
     Dates: end: 20100324
  2. SIMPONI [Concomitant]
     Dates: start: 20100326

REACTIONS (1)
  - ACUTE RESPIRATORY DISTRESS SYNDROME [None]
